FAERS Safety Report 8576423-6 (Version None)
Quarter: 2012Q3

REPORT INFORMATION
  Report Type: 
  Country: None (occurrence: None)
  Receive Date: 20120807
  Receipt Date: 20120606
  Transmission Date: 20120928
  Serious: Yes (Death, Other)
  Sender: FDA-Public Use
  Company Number: FR-ROCHE-1096260

PATIENT
  Sex: Male

DRUGS (10)
  1. OXALIPLATIN [Suspect]
     Dosage: LINE 3
     Dates: start: 20111011, end: 20111109
  2. AVASTIN [Suspect]
     Indication: COLON CANCER
     Dosage: LINE 3
     Dates: start: 20111011, end: 20111109
  3. FLUOROURACIL [Suspect]
     Indication: COLON CANCER
     Dosage: LINE 1
     Dates: start: 20110413, end: 20110629
  4. LEUCOVORIN CALCIUM [Suspect]
     Indication: COLON CANCER
     Dosage: LINE 1
     Dates: start: 20110413, end: 20110629
  5. LEUCOVORIN CALCIUM [Suspect]
     Dosage: LINE 2
     Dates: start: 20110712, end: 20110928
  6. LEUCOVORIN CALCIUM [Suspect]
     Dosage: LINE 3
     Dates: start: 20111011, end: 20111109
  7. OXALIPLATIN [Suspect]
     Indication: COLON CANCER
     Dosage: LINE 2
     Dates: start: 20110712, end: 20110928
  8. IRINOTECAN HCL [Suspect]
     Indication: COLON CANCER
     Dosage: LINE 1
     Dates: start: 20110413, end: 20110629
  9. FLUOROURACIL [Suspect]
     Dosage: LINE 2
     Dates: start: 20110712, end: 20110928
  10. FLUOROURACIL [Suspect]
     Dosage: LINE 3
     Dates: start: 20111011, end: 20111109

REACTIONS (4)
  - DEATH [None]
  - DISEASE PROGRESSION [None]
  - EPISTAXIS [None]
  - GENERAL PHYSICAL HEALTH DETERIORATION [None]
